FAERS Safety Report 25468047 (Version 2)
Quarter: 2025Q3

REPORT INFORMATION
  Report Type: Spontaneous
  Country: US (occurrence: US)
  Receive Date: 20250623
  Receipt Date: 20250709
  Transmission Date: 20251021
  Serious: No
  Sender: FDC LIMITED
  Company Number: US-FDC-2025USSPO00257

PATIENT
  Sex: Female

DRUGS (1)
  1. CIPROFLOXACIN [Suspect]
     Active Substance: CIPROFLOXACIN
     Indication: Product used for unknown indication
     Route: 047

REACTIONS (2)
  - Visual impairment [Unknown]
  - Recalled product administered [Unknown]
